FAERS Safety Report 4364344-4 (Version None)
Quarter: 2004Q2

REPORT INFORMATION
  Report Type: 
  Country: None (occurrence: None)
  Receive Date: 20040525
  Receipt Date: 20040209
  Transmission Date: 20050107
  Serious: No
  Sender: FDA-Public Use
  Company Number: US-BRISTOL-MYERS SQUIBB COMPANY-12499844

PATIENT
  Age: 2 Decade
  Sex: Female

DRUGS (1)
  1. CYCLOPHOSPHAMIDE [Suspect]
     Route: 042
     Dates: start: 20040101, end: 20040101

REACTIONS (1)
  - ERYTHEMA [None]
